FAERS Safety Report 10144966 (Version 1)
Quarter: 2014Q2

REPORT INFORMATION
  Report Type: Spontaneous
  Country: US (occurrence: US)
  Receive Date: 20140430
  Receipt Date: 20140430
  Transmission Date: 20141212
  Serious: No
  Sender: FDA-Public Use
  Company Number: US-009507513-1403USA014027

PATIENT
  Sex: Female

DRUGS (4)
  1. OXYTROL FOR WOMEN [Suspect]
     Indication: PRODUCT USED FOR UNKNOWN INDICATION
     Dosage: 4TH PATCH ON HER RIGHT BUTTOCKS
     Route: 062
  2. OXYTROL FOR WOMEN [Suspect]
     Dosage: FIRST PATCH ON HER LOWER ABDOMEN
     Route: 062
  3. OXYTROL FOR WOMEN [Suspect]
     Dosage: 2ND PATCH APPLIED TO THE OTHER SIDE OF HER LOWER ABDOMEN
     Route: 062
  4. OXYTROL FOR WOMEN [Suspect]
     Dosage: 3ND PATCH APPLIED TO HER LEFT BUTTOCKS
     Route: 062

REACTIONS (6)
  - Application site burn [Unknown]
  - Application site pain [Unknown]
  - Application site pruritus [Unknown]
  - Application site erythema [Recovering/Resolving]
  - Application site inflammation [Unknown]
  - Application site warmth [Unknown]
